FAERS Safety Report 8115813-2 (Version None)
Quarter: 2012Q1

REPORT INFORMATION
  Report Type: 
  Country: None (occurrence: None)
  Receive Date: 20120206
  Receipt Date: 20120124
  Transmission Date: 20120608
  Serious: Yes (Hospitalization)
  Sender: FDA-Public Use
  Company Number: DE-ROCHE-1005934

PATIENT
  Sex: Female
  Weight: 70 kg

DRUGS (16)
  1. HERCEPTIN [Suspect]
     Dates: start: 20111020
  2. PANTOPRAZOLE [Concomitant]
  3. LASIX [Concomitant]
  4. AMPICILLIN AND SULBACTAM [Concomitant]
     Dates: end: 20111014
  5. VALPROATE SODIUM [Concomitant]
     Indication: EPILEPSY
  6. ACETAMINOPHEN [Concomitant]
  7. METOCLOPRAMIDE [Concomitant]
  8. IBUPROFEN [Concomitant]
     Route: 048
  9. PACLITAXEL [Concomitant]
  10. POLYETHYLENE GLYCOL [Concomitant]
     Route: 048
  11. DEXAMETHASONE [Concomitant]
     Route: 048
  12. OXYCODONE HYDROCHLORIDE [Concomitant]
     Route: 048
  13. LYRICA [Concomitant]
     Indication: EPILEPSY
     Route: 048
  14. FORTECORTIN [Concomitant]
  15. HERCEPTIN [Suspect]
     Indication: BREAST CANCER METASTATIC
     Route: 042
     Dates: start: 20110921
  16. MUSARIL [Concomitant]
     Route: 048

REACTIONS (4)
  - ERYTHEMA [None]
  - BLISTER [None]
  - MOUTH ULCERATION [None]
  - PRURITUS [None]
